FAERS Safety Report 16921024 (Version 10)
Quarter: 2022Q3

REPORT INFORMATION
  Report Type: Report from Study
  Country: BE (occurrence: BE)
  Receive Date: 20191015
  Receipt Date: 20220728
  Transmission Date: 20221027
  Serious: Yes (Life-Threatening, Hospitalization)
  Sender: FDA-Public Use
  Company Number: BE-TAKEDA-2019TUS056994

PATIENT
  Age: 23 Year
  Sex: Female
  Weight: 73.7 kg

DRUGS (14)
  1. BRENTUXIMAB VEDOTIN [Suspect]
     Active Substance: BRENTUXIMAB VEDOTIN
     Indication: Hodgkin^s disease
     Dosage: 94.68 MILLIGRAM, Q2WEEKS
     Route: 042
     Dates: start: 20190802
  2. BRENTUXIMAB VEDOTIN [Suspect]
     Active Substance: BRENTUXIMAB VEDOTIN
     Dosage: 90.6 MILLIGRAM, Q2WEEKS
     Route: 042
     Dates: start: 20191025
  3. DOXORUBICIN HYDROCHLORIDE [Concomitant]
     Active Substance: DOXORUBICIN HYDROCHLORIDE
     Indication: Hodgkin^s disease
     Dosage: 48.00 MILLIGRAM, Q2WEEKS
     Route: 042
     Dates: start: 20190802
  4. DOXORUBICIN HYDROCHLORIDE [Concomitant]
     Active Substance: DOXORUBICIN HYDROCHLORIDE
     Dosage: 47.00 MILLIGRAM, Q2WEEKS
     Route: 042
     Dates: start: 20191025
  5. DEXAMETHASONE [Concomitant]
     Active Substance: DEXAMETHASONE
     Indication: Nausea
     Dosage: 4 MILLIGRAM, Q2WEEKS
     Route: 042
     Dates: start: 20190802, end: 20200117
  6. DACARBAZINE [Concomitant]
     Active Substance: DACARBAZINE
     Indication: Hodgkin^s disease
     Dosage: 720.00 MILLIGRAM, Q2WEEKS
     Route: 042
     Dates: start: 20190802
  7. DACARBAZINE [Concomitant]
     Active Substance: DACARBAZINE
     Dosage: 720.00 MILLIGRAM, Q2WEEKS
     Route: 042
     Dates: start: 20191025
  8. VINBLASTINE [Concomitant]
     Active Substance: VINBLASTINE
     Indication: Hodgkin^s disease
     Dosage: 11.60 MILLIGRAM, Q2WEEKS
     Route: 042
     Dates: start: 20190802
  9. VINBLASTINE [Concomitant]
     Active Substance: VINBLASTINE
     Dosage: 11.30 MILLIGRAM, Q2WEEKS
     Route: 042
     Dates: start: 20191025
  10. PANTOMED [DEXPANTHENOL] [Concomitant]
     Indication: Prophylaxis
     Dosage: 40 MILLIGRAM, QD
     Route: 048
     Dates: start: 20190812, end: 20200110
  11. LITICAN [ALIZAPRIDE] [Concomitant]
     Indication: Nausea
     Dosage: 50 MILLIGRAM
     Route: 048
     Dates: start: 20190812, end: 20200428
  12. ZOFRAN [Concomitant]
     Active Substance: ONDANSETRON HYDROCHLORIDE
     Indication: Nausea
     Dosage: 3 MILLIGRAM, BID
     Route: 048
     Dates: start: 20190913, end: 20200131
  13. MOVICOL [Concomitant]
     Active Substance: POLYETHYLENE GLYCOL 3350\POTASSIUM CHLORIDE\SODIUM BICARBONATE\SODIUM CHLORIDE
     Indication: Constipation
     Dosage: UNK
     Route: 048
     Dates: start: 20190812, end: 20190812
  14. AACIDEXAM [DEXAMETHASONE] [Concomitant]
     Indication: Nausea
     Dosage: 4 MILLIGRAM, QD
     Route: 048
     Dates: start: 20190812, end: 20190916

REACTIONS (3)
  - Pneumocystis jirovecii pneumonia [Recovered/Resolved]
  - Anaemia [Recovering/Resolving]
  - Febrile neutropenia [Recovered/Resolved]

NARRATIVE: CASE EVENT DATE: 20191011
